FAERS Safety Report 4758451-1 (Version None)
Quarter: 2005Q3

REPORT INFORMATION
  Report Type: 
  Country: None (occurrence: None)
  Receive Date: 20050901
  Receipt Date: 20010530
  Transmission Date: 20060218
  Serious: Yes (Hospitalization)
  Sender: FDA-Public Use
  Company Number: FR-BOEHRINGER INGELHEIM PHARMACEUTICALS, INC.-2001-FF-S0323

PATIENT
  Sex: Male
  Weight: 3 kg

DRUGS (9)
  1. VIRAMUNE [Suspect]
     Indication: VERTICAL INFECTION TRANSMISSION
     Route: 048
     Dates: start: 20000727, end: 20030727
  2. VIRAMUNE [Suspect]
     Route: 048
     Dates: start: 20000730, end: 20000730
  3. VIRAMUNE [Suspect]
     Indication: HIV INFECTION
     Route: 015
     Dates: end: 20000725
  4. VIRAMUNE [Suspect]
     Route: 015
     Dates: start: 20000725, end: 20000725
  5. VIRACEPT [Suspect]
     Indication: HIV INFECTION
     Route: 015
     Dates: end: 20000725
  6. INVIRASE [Suspect]
     Indication: HIV INFECTION
     Route: 015
     Dates: end: 20000725
  7. ALUMINUM HYDROXIDE AND MAGNESIUM TRISILICATE [Concomitant]
     Route: 015
  8. IRON [Concomitant]
     Route: 015
  9. SPASFON [Concomitant]
     Route: 015

REACTIONS (10)
  - ANAEMIA [None]
  - ANAEMIA NEONATAL [None]
  - BLOOD CREATININE INCREASED [None]
  - CAESAREAN SECTION [None]
  - DRUG EXPOSURE DURING PREGNANCY [None]
  - HYPERTRIGLYCERIDAEMIA [None]
  - NEONATAL DISORDER [None]
  - NEUTROPENIA [None]
  - NEUTROPENIA NEONATAL [None]
  - THROMBOCYTHAEMIA [None]
